FAERS Safety Report 20998435 (Version 1)
Quarter: 2022Q3

REPORT INFORMATION
  Report Type: Report from Study
  Country: MX (occurrence: MX)
  Receive Date: 20220623
  Receipt Date: 20220623
  Transmission Date: 20221027
  Serious: Yes (Death, Other)
  Sender: FDA-Public Use
  Company Number: MX-NOVARTISPH-NVSC2022MX143445

PATIENT
  Sex: Female

DRUGS (1)
  1. KISQALI [Suspect]
     Active Substance: RIBOCICLIB
     Indication: Breast cancer
     Dosage: 200 MG
     Route: 065
     Dates: start: 202202

REACTIONS (5)
  - Feeling abnormal [Fatal]
  - Discomfort [Fatal]
  - Metastases to lung [Fatal]
  - Metastases to bone [Fatal]
  - Metastases to liver [Fatal]
